FAERS Safety Report 5810525-X (Version None)
Quarter: 2008Q3

REPORT INFORMATION
  Report Type: 
  Country: None (occurrence: None)
  Receive Date: 20080715
  Receipt Date: 20080707
  Transmission Date: 20090109
  Serious: Yes (Other)
  Sender: FDA-Public Use
  Company Number: US-ELI_LILLY_AND_COMPANY-US200805004398

PATIENT
  Sex: Male

DRUGS (9)
  1. BYETTA [Suspect]
     Dosage: 5 UG, 2/D
     Dates: start: 20060808, end: 20060912
  2. BYETTA [Suspect]
     Dosage: 10 UG, 2/D
     Dates: start: 20060913, end: 20080206
  3. AVANDIA [Concomitant]
     Dosage: 8 MG, DAILY (1/D)
     Dates: start: 20030101
  4. METFORMIN [Concomitant]
     Dosage: 1000 MG, 2/D
     Dates: start: 20030101
  5. GLYBURIDE [Concomitant]
     Dosage: 10 MG, 2/D
     Dates: start: 20030101
  6. CAPTOPRIL [Concomitant]
     Dosage: 50 MG, 2/D
     Dates: start: 20030101
  7. LIPITOR [Concomitant]
     Dosage: 20 MG, DAILY (1/D)
     Dates: start: 20030101
  8. ZETIA [Concomitant]
     Dosage: 10 MG, DAILY (1/D)
     Dates: start: 20050101
  9. SYNTHROID [Concomitant]
     Dosage: 100 UG, DAILY (1/D)
     Dates: start: 20050101

REACTIONS (1)
  - PANCREATIC CARCINOMA [None]
